FAERS Safety Report 9916839 (Version 2)
Quarter: 2014Q2

REPORT INFORMATION
  Report Type: Spontaneous
  Country: US (occurrence: US)
  Receive Date: 20140221
  Receipt Date: 20140627
  Transmission Date: 20141212
  Serious: Yes (Hospitalization)
  Sender: FDA-Public Use
  Company Number: US-ACTAVIS-2014-02752

PATIENT
  Age: 84 Year
  Sex: Female

DRUGS (3)
  1. OXYTROL (WATSON LABORATORIES) [Suspect]
     Indication: BLADDER DISORDER
     Dosage: UNK UNK, TID
  2. DETROL LA [Suspect]
     Indication: BLADDER DISORDER
     Dosage: 4 MG, BID
     Route: 065
     Dates: start: 2007
  3. TOVIAZ [Suspect]
     Indication: BLADDER DISORDER
     Dosage: 8 MG, DAILY
     Route: 065

REACTIONS (5)
  - Bladder disorder [Unknown]
  - Feeling hot [Unknown]
  - Urinary incontinence [Unknown]
  - Feeling abnormal [Unknown]
  - Condition aggravated [Unknown]
